FAERS Safety Report 9958599 (Version 1)
Quarter: 2014Q1

REPORT INFORMATION
  Report Type: Spontaneous
  Country: US (occurrence: None)
  Receive Date: 20140124
  Receipt Date: 20140124
  Transmission Date: 20141002
  Serious: Yes (Hospitalization, Other)
  Sender: FDA-Public Use
  Company Number: 2010AP002321

PATIENT
  Age: 52 Year
  Sex: Male

DRUGS (6)
  1. OMEPRAZOLE DELAYED-RELEASE CAPSULES, USP [Suspect]
     Indication: ABDOMINAL PAIN UPPER
  2. ACETYLSALICYLIC ACID [Concomitant]
  3. VALSARTAN [Concomitant]
  4. HYDROCHLOROTHIAZIDE [Concomitant]
  5. ATORVASTATIN [Concomitant]
  6. ESOMEPRAZOLE [Concomitant]

REACTIONS (1)
  - Liver injury [None]
